FAERS Safety Report 15515807 (Version 1)
Quarter: 2018Q4

REPORT INFORMATION
  Report Type: Spontaneous
  Country: US (occurrence: US)
  Receive Date: 20181017
  Receipt Date: 20181017
  Transmission Date: 20190205
  Serious: Yes (Hospitalization, Other)
  Sender: FDA-Public Use
  Company Number: US-AUROBINDO-AUR-APL-2018-049709

PATIENT
  Age: 57 Year
  Sex: Female

DRUGS (6)
  1. VANCOMYCIN [Suspect]
     Active Substance: VANCOMYCIN
     Dosage: DOSED FOR GOAL TROUGH 15 TO 20 MG/L (THROUGH DAY 20) ()
     Route: 042
  2. GENTAMICIN. [Suspect]
     Active Substance: GENTAMICIN
     Indication: DEVICE RELATED INFECTION
     Dosage: 1.5 GRAM,ANTIBIOTIC-IMPREGNATED CEMENT SPACER
     Route: 065
  3. PIPERACILLIN+TAZOBACTAM INJECTION [Suspect]
     Active Substance: PIPERACILLIN SODIUM\TAZOBACTAM SODIUM
     Indication: PRODUCT USED FOR UNKNOWN INDICATION
     Dosage: 3.37 GRAM, 3 TIMES A DAY
     Route: 042
  4. TOBRAMYCIN. [Suspect]
     Active Substance: TOBRAMYCIN
     Indication: DEVICE RELATED INFECTION
     Dosage: 7.2 GRAM,ANTIBIOTIC-IMPREGNATED CEMENT SPACER
     Route: 065
  5. IBUPROFEN. [Suspect]
     Active Substance: IBUPROFEN
     Indication: PAIN
     Dosage: 800 MILLIGRAM,TOTAL OF 3 DOSES OF IBUPROFEN 800 MG EVERY 8 HOURS AS NEEDED ; AS NECESSARY
     Route: 065
  6. VANCOMYCIN [Suspect]
     Active Substance: VANCOMYCIN
     Indication: DEVICE RELATED INFECTION
     Dosage: 9 GRAM,ANTIBIOTIC-IMPREGNATED CEMENT SPACER
     Route: 065

REACTIONS (3)
  - Renal tubular necrosis [Recovered/Resolved]
  - Nephropathy toxic [Recovered/Resolved]
  - Acute kidney injury [Recovered/Resolved]
